FAERS Safety Report 5811566-9 (Version None)
Quarter: 2008Q3

REPORT INFORMATION
  Report Type: 
  Country: None (occurrence: None)
  Receive Date: 20080716
  Receipt Date: 20080711
  Transmission Date: 20090109
  Serious: Yes (Other)
  Sender: FDA-Public Use
  Company Number: US-MERCK-0707USA00485

PATIENT
  Age: 67 Year
  Sex: Female
  Weight: 63 kg

DRUGS (3)
  1. FOSAMAX [Suspect]
     Indication: OSTEOPOROSIS
     Route: 048
     Dates: start: 20010101, end: 20070202
  2. FOSAMAX [Suspect]
     Indication: OSTEOPENIA
     Route: 048
     Dates: start: 20010101, end: 20070202
  3. LEVOTHYROXINE SODIUM [Concomitant]
     Route: 065
     Dates: start: 19660101

REACTIONS (16)
  - CELLULITIS [None]
  - CORONARY ARTERY DISEASE [None]
  - DIVERTICULUM [None]
  - INCORRECT DOSE ADMINISTERED [None]
  - INTERVERTEBRAL DISC DEGENERATION [None]
  - JAW DISORDER [None]
  - MUSCULOSKELETAL CHEST PAIN [None]
  - OSTEOPENIA [None]
  - PAIN IN JAW [None]
  - RENAL CYST [None]
  - RIB FRACTURE [None]
  - ROTATOR CUFF SYNDROME [None]
  - SKIN CANCER [None]
  - TACHYCARDIA [None]
  - TENDONITIS [None]
  - URINARY TRACT INFECTION [None]
